FAERS Safety Report 12839052 (Version 1)
Quarter: 2016Q4

REPORT INFORMATION
  Report Type: Spontaneous
  Country: US (occurrence: US)
  Receive Date: 20161010
  Receipt Date: 20161010
  Transmission Date: 20170207
  Serious: Yes (Hospitalization)
  Sender: FDA-Public Use
  Company Number: None

PATIENT
  Age: 72 Year
  Sex: Male
  Weight: 63.5 kg

DRUGS (1)
  1. OBINUTUZUMAB [Suspect]
     Active Substance: OBINUTUZUMAB
     Indication: MANTLE CELL LYMPHOMA
     Route: 041
     Dates: start: 20160714, end: 20160715

REACTIONS (4)
  - Empyema [None]
  - Pneumonia [None]
  - Pleural effusion [None]
  - Hypoxia [None]

NARRATIVE: CASE EVENT DATE: 20160717
